FAERS Safety Report 5450012-4 (Version None)
Quarter: 2007Q3

REPORT INFORMATION
  Report Type: 
  Country: None (occurrence: None)
  Receive Date: 20070912
  Receipt Date: 20070905
  Transmission Date: 20080115
  Serious: Yes (Other)
  Sender: FDA-Public Use
  Company Number: HQWYE070707SEP07

PATIENT
  Sex: Male

DRUGS (1)
  1. RAPAMUNE [Suspect]
     Indication: PULMONARY HYPERTENSION
     Dosage: DOSE UNKNOWN
     Route: 048

REACTIONS (3)
  - CHILLS [None]
  - FATIGUE [None]
  - TREMOR [None]
